FAERS Safety Report 8886162 (Version 5)
Quarter: 2014Q1

REPORT INFORMATION
  Report Type: Spontaneous
  Country: US (occurrence: US)
  Receive Date: 20121105
  Receipt Date: 20140124
  Transmission Date: 20141002
  Serious: Yes (Hospitalization, Disabling, Other)
  Sender: FDA-Public Use
  Company Number: US-009507513-1210USA012393

PATIENT
  Sex: Female
  Weight: 69.62 kg

DRUGS (4)
  1. FOSAMAX [Suspect]
     Indication: OSTEOPENIA
     Dosage: 70 MG, QW
     Route: 048
     Dates: start: 1999, end: 201003
  2. FOSAMAX [Suspect]
     Indication: OSTEOPENIA
     Dosage: 70 MG, QW
     Route: 048
     Dates: start: 1999, end: 201003
  3. FOSAMAX PLUS D [Suspect]
     Indication: OSTEOPENIA
     Dosage: 70 MG, UNK
     Route: 048
     Dates: start: 1999, end: 201003
  4. ALENDRONATE SODIUM [Suspect]
     Indication: OSTEOPENIA
     Dosage: 70 MG, UNK
     Route: 048
     Dates: start: 20100128, end: 2010

REACTIONS (17)
  - Femur fracture [Recovered/Resolved with Sequelae]
  - Open reduction of fracture [Recovered/Resolved with Sequelae]
  - Atelectasis [Unknown]
  - Pulmonary mass [Unknown]
  - Bone graft [Unknown]
  - Nausea [Unknown]
  - Vomiting [Unknown]
  - Rhinitis perennial [Unknown]
  - Skeletal injury [Unknown]
  - Contusion [Unknown]
  - Muscle strain [Unknown]
  - Rib fracture [Unknown]
  - Excoriation [Unknown]
  - Spinal osteoarthritis [Unknown]
  - Osteoporosis [Recovering/Resolving]
  - Hypercholesterolaemia [Unknown]
  - Gastrooesophageal reflux disease [Unknown]
